FAERS Safety Report 7370088-7 (Version None)
Quarter: 2011Q1

REPORT INFORMATION
  Report Type: 
  Country: None (occurrence: None)
  Receive Date: 20110323
  Receipt Date: 20110310
  Transmission Date: 20110831
  Serious: Yes (Hospitalization, Other)
  Sender: FDA-Public Use
  Company Number: PHFR2011GB01065

PATIENT
  Sex: Male

DRUGS (8)
  1. CLOZARIL [Suspect]
     Dosage: 650 MG, UNK
     Route: 048
     Dates: start: 20101020
  2. CLOZARIL [Suspect]
     Dosage: UNK DF, UNK
     Route: 048
     Dates: end: 20110223
  3. ESCITALOPRAM [Concomitant]
  4. OLANZAPINE [Concomitant]
     Dosage: UNK
     Dates: start: 20110223
  5. SIMVASTATIN [Concomitant]
  6. VALPROATE SODIUM [Concomitant]
  7. LAMOTRIGINE [Concomitant]
  8. CLOZARIL [Suspect]
     Indication: SCHIZOPHRENIA
     Dosage: UNK DF, UNK
     Route: 048
     Dates: start: 19960219

REACTIONS (4)
  - WHITE BLOOD CELL COUNT DECREASED [None]
  - BLOOD TEST ABNORMAL [None]
  - NEUTROPHIL COUNT DECREASED [None]
  - MENTAL DISORDER [None]
